FAERS Safety Report 6342289-8 (Version None)
Quarter: 2009Q3

REPORT INFORMATION
  Report Type: 
  Country: None (occurrence: None)
  Receive Date: 20090907
  Receipt Date: 20090827
  Transmission Date: 20100115
  Serious: Yes (Life-Threatening, Hospitalization)
  Sender: FDA-Public Use
  Company Number: US-BIOGENIDEC-2009BI014005

PATIENT
  Age: 37 Year
  Sex: Female

DRUGS (19)
  1. TYSABRI [Suspect]
     Indication: MULTIPLE SCLEROSIS
     Route: 042
     Dates: start: 20080825, end: 20090114
  2. BETASERON [Concomitant]
     Route: 058
     Dates: start: 20090301
  3. CYMBALTA [Concomitant]
  4. PROPRANOLOL [Concomitant]
  5. CLONAZEPAM [Concomitant]
  6. FIORICET [Concomitant]
  7. KEFLEX [Concomitant]
  8. NEXIUM [Concomitant]
  9. PRANDIN [Concomitant]
  10. VITAMIN D [Concomitant]
  11. LUNESTA [Concomitant]
  12. DIAZEPAM [Concomitant]
  13. BACLOFEN [Concomitant]
  14. METHIMAZOLE [Concomitant]
  15. METFORMIN HCL [Concomitant]
  16. REPAGLINIDE [Concomitant]
  17. AMANTADINE HCL [Concomitant]
  18. JANUVIA [Concomitant]
  19. IMMUNE GLOBULIN INTRAVENOUS (HUMAN) [Concomitant]

REACTIONS (2)
  - DEEP VEIN THROMBOSIS [None]
  - PULMONARY EMBOLISM [None]
